FAERS Safety Report 9009108 (Version 1)
Quarter: 2013Q1

REPORT INFORMATION
  Report Type: Spontaneous
  Country: US (occurrence: US)
  Receive Date: 20130111
  Receipt Date: 20130111
  Transmission Date: 20140127
  Serious: No
  Sender: FDA-Public Use
  Company Number: US-GLAXOSMITHKLINE-A0997316A

PATIENT
  Age: 89 Year
  Sex: Male

DRUGS (2)
  1. JALYN [Suspect]
     Indication: BENIGN PROSTATIC HYPERPLASIA
     Dosage: 1CAPL SINGLE DOSE
     Route: 048
     Dates: start: 20121010, end: 20121010
  2. AVODART [Suspect]
     Indication: BENIGN PROSTATIC HYPERPLASIA
     Route: 048

REACTIONS (10)
  - Skin discolouration [Recovered/Resolved]
  - Fatigue [Unknown]
  - Dizziness [Unknown]
  - Dizziness [Unknown]
  - Irritability [Unknown]
  - Tremor [Unknown]
  - Epigastric discomfort [Unknown]
  - Blood pressure decreased [Unknown]
  - Drug ineffective [Unknown]
  - Agitation [Unknown]
